FAERS Safety Report 5294555-5 (Version None)
Quarter: 2007Q2

REPORT INFORMATION
  Report Type: 
  Country: None (occurrence: None)
  Receive Date: 20070409
  Receipt Date: 20070409
  Transmission Date: 20071010
  Serious: Yes (Hospitalization)
  Sender: FDA-Public Use
  Company Number: None

PATIENT
  Age: 26 Year
  Sex: Male
  Weight: 84.369 kg

DRUGS (1)
  1. GEODON [Suspect]
     Indication: SCHIZOPHRENIA
     Dosage: 80MG OONCE DAILY PO
     Route: 048
     Dates: start: 20070101, end: 20070406

REACTIONS (3)
  - PHARMACEUTICAL PRODUCT COMPLAINT [None]
  - SELF MUTILATION [None]
  - SKIN LACERATION [None]
